FAERS Safety Report 24856148 (Version 2)
Quarter: 2025Q1

REPORT INFORMATION
  Report Type: Report from Study
  Country: DE (occurrence: DE)
  Receive Date: 20250117
  Receipt Date: 20250214
  Transmission Date: 20250408
  Serious: Yes (Hospitalization)
  Sender: PFIZER
  Company Number: DE-Boehringer Ingelheim GmbH, Germany-2014-BI-13569DE

PATIENT
  Age: 54 Year
  Sex: Female
  Weight: 51 kg

DRUGS (9)
  1. DOCETAXEL [Suspect]
     Active Substance: DOCETAXEL
     Indication: Non-small cell lung cancer
     Dates: start: 20140318, end: 20140318
  2. PIPERACILLIN SODIUM\TAZOBACTAM SODIUM [Suspect]
     Active Substance: PIPERACILLIN SODIUM\TAZOBACTAM SODIUM
     Indication: Stomatitis
  3. AMPICILLIN SODIUM\SULBACTAM SODIUM [Suspect]
     Active Substance: AMPICILLIN SODIUM\SULBACTAM SODIUM
     Indication: Stomatitis
  4. NINTEDANIB [Suspect]
     Active Substance: NINTEDANIB
     Indication: Non-small cell lung cancer metastatic
     Dosage: 400 UNK, DAILY
     Route: 048
     Dates: start: 20140317, end: 20140323
  5. DEXAMETHASONE [Concomitant]
     Active Substance: DEXAMETHASONE
     Indication: Oedema
     Dosage: 12 MG, DAILY
     Route: 048
     Dates: start: 201402
  6. AMPHO-MORONAL [Concomitant]
     Active Substance: AMPHOTERICIN B
     Dates: start: 20140317
  7. FLUCONAZOLE [Concomitant]
     Active Substance: FLUCONAZOLE
     Indication: Mucosal inflammation
     Dosage: 200 UNK, DAILY
     Route: 042
  8. TEPILTA [ALUMINIUM HYDROXIDE GEL;MAGNESIUM HYDROXIDE;OXETACAINE] [Concomitant]
     Route: 048
  9. XYLOCAIN VISCOES [Concomitant]

REACTIONS (10)
  - Candida infection [Unknown]
  - Mucosal inflammation [Unknown]
  - Condition aggravated [Unknown]
  - Leukopenia [Unknown]
  - Neutropenia [Unknown]
  - Staphylococcal infection [Unknown]
  - Stomatitis [Unknown]
  - Alopecia [Unknown]
  - Palmar-plantar erythrodysaesthesia syndrome [Unknown]
  - Diarrhoea [Recovered/Resolved]

NARRATIVE: CASE EVENT DATE: 20140322
